FAERS Safety Report 14101382 (Version 1)
Quarter: 2017Q4

REPORT INFORMATION
  Report Type: Spontaneous
  Country: US (occurrence: US)
  Receive Date: 20171017
  Receipt Date: 20171017
  Transmission Date: 20180321
  Serious: Yes (Disabling)
  Sender: FDA-Public Use
  Company Number: None

PATIENT
  Age: 37 Year
  Sex: Female
  Weight: 39.6 kg

DRUGS (2)
  1. MIRTAZAPINE. [Suspect]
     Active Substance: MIRTAZAPINE
     Indication: ANXIETY
     Dosage: ?          QUANTITY:45 TABLET(S);?
     Route: 048
     Dates: start: 20170217
  2. MIRTAZAPINE. [Suspect]
     Active Substance: MIRTAZAPINE
     Indication: DEPRESSION
     Dosage: ?          QUANTITY:45 TABLET(S);?
     Route: 048
     Dates: start: 20170217

REACTIONS (59)
  - Food allergy [None]
  - Gastrooesophageal reflux disease [None]
  - Urine ketone body present [None]
  - Depression [None]
  - Disturbance in attention [None]
  - Feeling jittery [None]
  - Panic reaction [None]
  - Alopecia [None]
  - Dry skin [None]
  - Folliculitis [None]
  - Micturition urgency [None]
  - Dry mouth [None]
  - Hot flush [None]
  - Syncope [None]
  - Joint stiffness [None]
  - Headache [None]
  - Libido decreased [None]
  - Seizure [None]
  - Malaise [None]
  - Nausea [None]
  - Muscle spasms [None]
  - Paraesthesia [None]
  - Vertigo [None]
  - Fatigue [None]
  - Weight decreased [None]
  - Anxiety [None]
  - Memory impairment [None]
  - Chest pain [None]
  - Fall [None]
  - Tachycardia [None]
  - Balance disorder [None]
  - Decreased appetite [None]
  - Depersonalisation/derealisation disorder [None]
  - Blood urine present [None]
  - Pyrexia [None]
  - Dysphagia [None]
  - Crying [None]
  - Feeling abnormal [None]
  - Dyspnoea [None]
  - Pollakiuria [None]
  - Asthenia [None]
  - Chills [None]
  - Arthralgia [None]
  - Suicidal ideation [None]
  - Menstrual disorder [None]
  - Tremor [None]
  - Confusional state [None]
  - Muscle contractions involuntary [None]
  - Hyperhidrosis [None]
  - Influenza like illness [None]
  - Pain in extremity [None]
  - Palpitations [None]
  - Abdominal distension [None]
  - Dyspepsia [None]
  - Anaemia [None]
  - Musculoskeletal discomfort [None]
  - Dizziness [None]
  - Restless legs syndrome [None]
  - Pruritus [None]
